FAERS Safety Report 19868777 (Version 2)
Quarter: 2021Q3

REPORT INFORMATION
  Report Type: Spontaneous
  Country: US (occurrence: US)
  Receive Date: 20210921
  Receipt Date: 20210922
  Transmission Date: 20211014
  Serious: No
  Sender: FDA-Public Use
  Company Number: US-INTERSECT ENT, INC.-2118637

PATIENT
  Age: 34 Year
  Sex: Female

DRUGS (1)
  1. SINUVA [Suspect]
     Active Substance: MOMETASONE FUROATE
     Indication: NASAL POLYPS
     Route: 006
     Dates: start: 20210602

REACTIONS (3)
  - Nasal crusting [None]
  - Nasal polyps [None]
  - Nasal congestion [None]

NARRATIVE: CASE EVENT DATE: 20210702
